FAERS Safety Report 19868980 (Version 3)
Quarter: 2021Q4

REPORT INFORMATION
  Report Type: Report from Study
  Country: GB (occurrence: GB)
  Receive Date: 20210923
  Receipt Date: 20211012
  Transmission Date: 20220303
  Serious: Yes (Hospitalization, Other)
  Sender: FDA-Public Use
  Company Number: GB-BRISTOL-MYERS SQUIBB COMPANY-BMS-2021-094395

PATIENT
  Age: 67 Year
  Sex: Female
  Weight: 62 kg

DRUGS (11)
  1. NIVOLUMAB [Suspect]
     Active Substance: NIVOLUMAB
     Indication: Non-small cell lung cancer
     Dosage: 360 MILLIGRAM
     Route: 042
     Dates: start: 20210830
  2. ETOPOSIDE [Suspect]
     Active Substance: ETOPOSIDE
     Indication: Non-small cell lung cancer
     Dosage: 170 MILLIGRAM
     Route: 065
     Dates: start: 20210830
  3. CISPLATIN [Suspect]
     Active Substance: CISPLATIN
     Indication: Non-small cell lung cancer
     Dosage: 140 MILLIGRAM
     Route: 065
     Dates: start: 20210830
  4. COCODAMOL [Concomitant]
     Active Substance: ACETAMINOPHEN\CODEINE PHOSPHATE
     Indication: Product used for unknown indication
     Dosage: 1000 MILLIGRAM, QID
     Route: 048
     Dates: start: 20210811
  5. COCODAMOL [Concomitant]
     Active Substance: ACETAMINOPHEN\CODEINE PHOSPHATE
     Dosage: 2 TAB, Q6H
     Route: 065
     Dates: end: 20210915
  6. LANSOPRAZOLE [Concomitant]
     Active Substance: LANSOPRAZOLE
     Indication: Prophylaxis
     Dosage: 30 MILLIGRAM, QD
     Route: 048
     Dates: start: 20040715
  7. ONDANSETRON [Concomitant]
     Active Substance: ONDANSETRON
     Indication: Product used for unknown indication
     Dosage: 8 MILLIGRAM, ONCE
     Route: 042
     Dates: start: 20210901, end: 20210901
  8. LEVOMEPROMAZINE [Concomitant]
     Active Substance: LEVOMEPROMAZINE
     Indication: Prophylaxis
     Dosage: 3 MILLIGRAM, Q12H
     Route: 048
     Dates: start: 20210901
  9. MOMETASONE FUROATE [Concomitant]
     Active Substance: MOMETASONE FUROATE
     Indication: Product used for unknown indication
     Dosage: 50 MILLIGRAM, QD
     Route: 061
     Dates: start: 20210827
  10. INCRUSE ELLIPTA [Concomitant]
     Active Substance: UMECLIDINIUM BROMIDE
     Indication: Product used for unknown indication
     Dosage: 55 MILLIGRAM, QD
     Route: 055
     Dates: start: 20210713
  11. DOMPERIDONE [Concomitant]
     Active Substance: DOMPERIDONE
     Indication: Product used for unknown indication
     Dosage: 10 MILLIGRAM, 6-8 HOURLY PRN
     Route: 065

REACTIONS (3)
  - Cellulitis [Recovering/Resolving]
  - Neutrophil count decreased [Recovered/Resolved]
  - White blood cell count decreased [Recovered/Resolved]

NARRATIVE: CASE EVENT DATE: 20210912
